FAERS Safety Report 20734817 (Version 1)
Quarter: 2022Q2

REPORT INFORMATION
  Report Type: Spontaneous
  Country: US (occurrence: None)
  Receive Date: 20220420
  Receipt Date: 20220420
  Transmission Date: 20220721
  Serious: No
  Sender: FDA-Public Use
  Company Number: None

PATIENT
  Age: 41 Year
  Weight: 123.75 kg

DRUGS (4)
  1. VENTOLIN HFA [Suspect]
     Active Substance: ALBUTEROL SULFATE
     Indication: Asthma
     Route: 055
  2. ALBUTEROL [Suspect]
     Active Substance: ALBUTEROL
  3. PROVENTIL [Suspect]
     Active Substance: ALBUTEROL
  4. PROAIR HFA [Suspect]
     Active Substance: ALBUTEROL SULFATE

REACTIONS (10)
  - Tremor [None]
  - Heart rate increased [None]
  - Palpitations [None]
  - Anxiety [None]
  - Panic attack [None]
  - Job dissatisfaction [None]
  - Manufacturing issue [None]
  - Product quality issue [None]
  - Cough [None]
  - Asthma [None]

NARRATIVE: CASE EVENT DATE: 20220305
